FAERS Safety Report 25400100 (Version 4)
Quarter: 2025Q3

REPORT INFORMATION
  Report Type: Report from Study
  Country: US (occurrence: US)
  Receive Date: 20250605
  Receipt Date: 20250926
  Transmission Date: 20251021
  Serious: Yes (Hospitalization, Other)
  Sender: SUNOVION
  Company Number: US-SMPA-2025SPA006817

PATIENT
  Age: 87 Year
  Sex: Male

DRUGS (2)
  1. ORGOVYX [Suspect]
     Active Substance: RELUGOLIX
     Indication: Prostate cancer
     Dosage: 360 MG, SINGLE
     Route: 048
     Dates: start: 20250309, end: 20250309
  2. ORGOVYX [Suspect]
     Active Substance: RELUGOLIX
     Dosage: 120 MG, QD
     Route: 048
     Dates: start: 20250310

REACTIONS (6)
  - Syncope [Unknown]
  - Foot fracture [Unknown]
  - Dialysis [Unknown]
  - Thrombosis in device [Unknown]
  - Dehydration [Unknown]
  - Hepatic enzyme increased [Unknown]
